FAERS Safety Report 10206198 (Version 1)
Quarter: 2014Q2

REPORT INFORMATION
  Report Type: Spontaneous
  Country: US (occurrence: None)
  Receive Date: 20140527
  Receipt Date: 20140527
  Transmission Date: 20141212
  Serious: Yes (Hospitalization, Disabling)
  Sender: FDA-Public Use
  Company Number: None

PATIENT
  Age: 39 Year
  Sex: Female
  Weight: 86.18 kg

DRUGS (5)
  1. DULOXETINE [Suspect]
     Indication: MAJOR DEPRESSION
     Route: 048
     Dates: start: 20140411, end: 20140519
  2. DULOXETINE [Suspect]
     Indication: ANXIETY DISORDER
     Route: 048
     Dates: start: 20140411, end: 20140519
  3. DULOXETINE [Suspect]
     Indication: AGORAPHOBIA
     Route: 048
     Dates: start: 20140411, end: 20140519
  4. SERTRALINE [Concomitant]
  5. HYDROXYZ HCL [Concomitant]

REACTIONS (8)
  - Suicide attempt [None]
  - Hypoaesthesia [None]
  - Sensory loss [None]
  - Paraesthesia [None]
  - Anosmia [None]
  - Ageusia [None]
  - Vision blurred [None]
  - Feeling abnormal [None]
